FAERS Safety Report 8995795 (Version 1)
Quarter: 2013Q1

REPORT INFORMATION
  Report Type: Spontaneous
  Country: US (occurrence: US)
  Receive Date: 20130103
  Receipt Date: 20130103
  Transmission Date: 20140127
  Serious: No
  Sender: FDA-Public Use
  Company Number: US-ABBOTT-12P-163-0920977-00

PATIENT
  Sex: 0

DRUGS (1)
  1. SYNTHROID [Suspect]
     Indication: PRODUCT USED FOR UNKNOWN INDICATION

REACTIONS (5)
  - Thyroid function test abnormal [Unknown]
  - Suspected counterfeit product [Unknown]
  - Product quality issue [Unknown]
  - Product colour issue [Not Recovered/Not Resolved]
  - Product physical issue [Not Recovered/Not Resolved]
